FAERS Safety Report 21962219 (Version 2)
Quarter: 2023Q1

REPORT INFORMATION
  Report Type: Report from Study
  Country: GB (occurrence: GB)
  Receive Date: 20230207
  Receipt Date: 20230220
  Transmission Date: 20230417
  Serious: Yes (Other)
  Sender: FDA-Public Use
  Company Number: GB-TAKEDA-2023TUS013021

PATIENT
  Sex: Male

DRUGS (1)
  1. VEDOLIZUMAB [Suspect]
     Active Substance: VEDOLIZUMAB
     Indication: Crohn^s disease
     Dosage: 108 MILLIGRAM
     Route: 058
     Dates: start: 202212

REACTIONS (5)
  - Prostate cancer metastatic [Unknown]
  - Metastases to bone [Unknown]
  - Diarrhoea [Unknown]
  - Decreased appetite [Unknown]
  - Incorrect dose administered [Unknown]
